FAERS Safety Report 9281268 (Version 3)
Quarter: 2013Q4

REPORT INFORMATION
  Report Type: Spontaneous
  Country: US (occurrence: US)
  Receive Date: 20130509
  Receipt Date: 20131217
  Transmission Date: 20140711
  Serious: Yes (Hospitalization)
  Sender: FDA-Public Use
  Company Number: US-BAYER-2013-057261

PATIENT
  Age: 20 Year
  Sex: Female
  Weight: 77.1 kg

DRUGS (7)
  1. YASMIN [Suspect]
     Dosage: UNK
     Dates: start: 2005, end: 2006
  2. VALIUM [Concomitant]
  3. PERCOCET [Concomitant]
  4. MULTIVITAMIN [Concomitant]
  5. MOTRIN [Concomitant]
     Dosage: UNK
     Dates: start: 2005
  6. VICODIN [Concomitant]
  7. INDOMETHACIN [Concomitant]

REACTIONS (11)
  - Pulmonary embolism [None]
  - Pulmonary embolism [None]
  - Deep vein thrombosis [None]
  - Pain [None]
  - Injury [None]
  - General physical health deterioration [None]
  - Abdominal pain [None]
  - Emotional distress [None]
  - Anxiety [None]
  - Pain [None]
  - Thrombosis [None]
